FAERS Safety Report 17835460 (Version 3)
Quarter: 2020Q4

REPORT INFORMATION
  Report Type: Report from Study
  Country: US (occurrence: US)
  Receive Date: 20200528
  Receipt Date: 20201125
  Transmission Date: 20210113
  Serious: Yes (Death, Hospitalization)
  Sender: FDA-Public Use
  Company Number: US-SA-2020SA116327

PATIENT

DRUGS (21)
  1. SARILUMAB [Suspect]
     Active Substance: SARILUMAB
     Indication: COVID-19
     Dosage: 200 MG, 1X
     Route: 042
     Dates: start: 20200415, end: 20200415
  2. ACETAMINOPHEN. [Concomitant]
     Active Substance: ACETAMINOPHEN
     Dosage: 650 MG, PRN
     Route: 050
     Dates: start: 20200415, end: 20200425
  3. MICAFUNGIN. [Concomitant]
     Active Substance: MICAFUNGIN SODIUM
     Indication: PRODUCT USED FOR UNKNOWN INDICATION
     Dosage: 100 MG IN 0.9% SODIUM CHLORIDE INFUSION 100 ML
     Route: 042
     Dates: start: 20200423, end: 20200425
  4. REMDESIVIR. [Concomitant]
     Active Substance: REMDESIVIR
     Dosage: 100 MG IN 0.9% SODIUM CHLORIDE INFUSION 230 ML, SINGLE
     Route: 042
     Dates: start: 20200418, end: 20200421
  5. AMIKACIN. [Concomitant]
     Active Substance: AMIKACIN
     Indication: URINARY TRACT INFECTION
  6. CEFAZOLIN [Concomitant]
     Active Substance: CEFAZOLIN
     Dosage: 2000 MG, BID
     Route: 042
     Dates: start: 20200423, end: 20200425
  7. HYDROCORTISONE. [Concomitant]
     Active Substance: HYDROCORTISONE
     Dosage: 100 MG, TID
     Route: 042
     Dates: start: 20200420, end: 20200425
  8. MIDAZOLAM. [Concomitant]
     Active Substance: MIDAZOLAM
     Indication: PRODUCT USED FOR UNKNOWN INDICATION
     Dosage: 10 MG, SINGLE
     Route: 042
     Dates: start: 20200417, end: 20200417
  9. METHYLPREDNISOLONE. [Concomitant]
     Active Substance: METHYLPREDNISOLONE
     Indication: PRODUCT USED FOR UNKNOWN INDICATION
     Dosage: 40 MG, BID
     Route: 042
     Dates: start: 20200411, end: 20200421
  10. CEFAZOLIN [Concomitant]
     Active Substance: CEFAZOLIN
     Indication: PRODUCT USED FOR UNKNOWN INDICATION
     Dosage: 2000 MG, TID
     Route: 042
     Dates: start: 20200423, end: 20200423
  11. HYDROCORTISONE. [Concomitant]
     Active Substance: HYDROCORTISONE
     Indication: PRODUCT USED FOR UNKNOWN INDICATION
     Dosage: 300 MG, SINGLE
     Route: 042
     Dates: start: 20200420, end: 20200420
  12. REMDESIVIR. [Concomitant]
     Active Substance: REMDESIVIR
     Indication: PRODUCT USED FOR UNKNOWN INDICATION
     Dosage: 2000 MG IN 0.9% SODIUMCHLORIDE INFUSION 210 ML, SINGLE
     Route: 042
     Dates: start: 20200417, end: 20200417
  13. MIDAZOLAM. [Concomitant]
     Active Substance: MIDAZOLAM
     Dosage: 100 MG IN NS 100 ML
     Route: 042
     Dates: start: 20200421, end: 20200423
  14. ACETAMINOPHEN. [Concomitant]
     Active Substance: ACETAMINOPHEN
     Indication: PYREXIA
  15. NYSTATIN. [Concomitant]
     Active Substance: NYSTATIN
     Indication: PRODUCT USED FOR UNKNOWN INDICATION
     Dosage: 1 DF (APPLICATION), TID
     Route: 061
     Dates: start: 20200423, end: 20200425
  16. LINEZOLID. [Concomitant]
     Active Substance: LINEZOLID
     Indication: PNEUMONIA STAPHYLOCOCCAL
     Dosage: 600 MG IN D5W 300 ML, BID
     Route: 042
     Dates: start: 20200420, end: 20200423
  17. RIFAXIMIN. [Concomitant]
     Active Substance: RIFAXIMIN
     Indication: PRODUCT USED FOR UNKNOWN INDICATION
     Dosage: 550 MG, BID
     Route: 042
     Dates: start: 20200424, end: 20200425
  18. AMIKACIN. [Concomitant]
     Active Substance: AMIKACIN
     Indication: PRODUCT USED FOR UNKNOWN INDICATION
     Dosage: 1000 MG IN 5% DEXTROSE IN WATER INFUSION 100 ML, ONCE
     Route: 042
     Dates: start: 20200422, end: 20200422
  19. FLUCONAZOLE. [Concomitant]
     Active Substance: FLUCONAZOLE
     Indication: PRODUCT USED FOR UNKNOWN INDICATION
     Dosage: 200 MG IN NS 100 ML, QD
     Route: 042
     Dates: start: 20200423, end: 20200423
  20. ZOSYN [Concomitant]
     Active Substance: PIPERACILLIN SODIUM\TAZOBACTAM SODIUM
     Indication: PNEUMONIA STAPHYLOCOCCAL
     Dosage: 4500 MG IN D5W 100 ML, QID
     Route: 042
     Dates: start: 20200420, end: 20200423
  21. MIDAZOLAM. [Concomitant]
     Active Substance: MIDAZOLAM
     Dosage: 100 MG IN NS 100 ML
     Route: 042
     Dates: start: 20200414, end: 20200419

REACTIONS (6)
  - Pneumothorax [Recovered/Resolved]
  - Urinary tract infection [Not Recovered/Not Resolved]
  - Pneumothorax [Recovered/Resolved]
  - Pneumonia staphylococcal [Not Recovered/Not Resolved]
  - Transaminases increased [Not Recovered/Not Resolved]
  - Coronavirus infection [Fatal]

NARRATIVE: CASE EVENT DATE: 20200420
